FAERS Safety Report 23913428 (Version 1)
Quarter: 2024Q2

REPORT INFORMATION
  Report Type: Spontaneous
  Country: NO (occurrence: NO)
  Receive Date: 20240529
  Receipt Date: 20240529
  Transmission Date: 20240716
  Serious: Yes (Hospitalization, Other)
  Sender: FDA-Public Use
  Company Number: None

PATIENT

DRUGS (4)
  1. LAMICTAL [Suspect]
     Active Substance: LAMOTRIGINE
     Indication: Depression
     Dosage: UNK
     Route: 048
     Dates: start: 2015
  2. LAMICTAL [Suspect]
     Active Substance: LAMOTRIGINE
     Indication: Attention deficit hyperactivity disorder
  3. LAMICTAL [Suspect]
     Active Substance: LAMOTRIGINE
     Indication: Post-traumatic stress disorder
  4. LAMICTAL [Suspect]
     Active Substance: LAMOTRIGINE
     Indication: Disturbance in attention

REACTIONS (9)
  - Altered state of consciousness [Unknown]
  - Dizziness [Unknown]
  - Visual impairment [Unknown]
  - Vomiting [Recovered/Resolved]
  - Ataxia [Recovered/Resolved]
  - Cerebrovascular accident [Unknown]
  - Fall [Unknown]
  - Gait inability [Unknown]
  - Coordination abnormal [Unknown]
